FAERS Safety Report 4634893-X (Version None)
Quarter: 2005Q2

REPORT INFORMATION
  Report Type: 
  Country: None (occurrence: None)
  Receive Date: 20050412
  Receipt Date: 20050330
  Transmission Date: 20051028
  Serious: Yes (Life-Threatening)
  Sender: FDA-Public Use
  Company Number: 2005052483

PATIENT
  Age: 29 Year
  Sex: Male

DRUGS (1)
  1. IDAMYCIN [Suspect]
     Indication: ACUTE MYELOID LEUKAEMIA
     Dosage: (10 MG), INTRAVENOUS
     Route: 042

REACTIONS (9)
  - APLASIA [None]
  - EOSINOPHIL PERCENTAGE INCREASED [None]
  - HYPOTENSION [None]
  - LUNG NEOPLASM [None]
  - LYMPHOCYTE COUNT INCREASED [None]
  - PRURITUS [None]
  - PYREXIA [None]
  - RASH MACULO-PAPULAR [None]
  - RESPIRATORY DISTRESS [None]
